FAERS Safety Report 4712080-4 (Version None)
Quarter: 2005Q2

REPORT INFORMATION
  Report Type: 
  Country: None (occurrence: None)
  Receive Date: 20050629
  Receipt Date: 20050407
  Transmission Date: 20051028
  Serious: No
  Sender: FDA-Public Use
  Company Number: 05P-163-0296747-00

PATIENT
  Age: 34 Year
  Sex: Female
  Weight: 37.8754 kg

DRUGS (7)
  1. HUMIRA [Suspect]
     Indication: JUVENILE ARTHRITIS
     Dosage: 40 MG, 1 IN 2 WK, SUBCUTANEOUS
     Route: 058
     Dates: start: 20030501
  2. POTASSIUM CHLORIDE [Concomitant]
  3. FAMOTIDINE [Concomitant]
  4. MULTI-VITAMINS [Concomitant]
  5. PREGAMAL [Concomitant]
  6. ULTRACET [Concomitant]
  7. PREDNISONE [Concomitant]

REACTIONS (2)
  - FATIGUE [None]
  - RHEUMATOID ARTHRITIS [None]
